FAERS Safety Report 9153845 (Version 1)
Quarter: 2013Q1

REPORT INFORMATION
  Report Type: Report from Study
  Country: US (occurrence: US)
  Receive Date: 20130311
  Receipt Date: 20130311
  Transmission Date: 20140127
  Serious: No
  Sender: FDA-Public Use
  Company Number: US-JNJFOC-20130206288

PATIENT
  Sex: Female

DRUGS (4)
  1. INVEGA SUSTENNA [Suspect]
     Indication: MENTAL DISORDER
     Route: 030
  2. INVEGA SUSTENNA [Suspect]
     Indication: MENTAL DISORDER
     Route: 030
  3. INVEGA [Suspect]
     Indication: MENTAL DISORDER
     Route: 048
  4. INVEGA [Suspect]
     Indication: MENTAL DISORDER
     Route: 048

REACTIONS (1)
  - Psychotic disorder [Unknown]
